FAERS Safety Report 7970263-4 (Version None)
Quarter: 2011Q4

REPORT INFORMATION
  Report Type: 
  Country: None (occurrence: None)
  Receive Date: 20111212
  Receipt Date: 20111209
  Transmission Date: 20120403
  Serious: Yes (Hospitalization)
  Sender: FDA-Public Use
  Company Number: IT-SANOFI-AVENTIS-2011SA080862

PATIENT
  Age: 76 Year
  Sex: Male

DRUGS (1)
  1. TAXOTERE [Suspect]
     Indication: LUNG ADENOCARCINOMA
     Route: 041
     Dates: start: 20111202, end: 20111202

REACTIONS (5)
  - BRONCHOSTENOSIS [None]
  - RESPIRATORY FAILURE [None]
  - HYPERTENSIVE CRISIS [None]
  - PULMONARY OEDEMA [None]
  - ANGIOEDEMA [None]
